FAERS Safety Report 16657082 (Version 2)
Quarter: 2019Q3

REPORT INFORMATION
  Report Type: Spontaneous
  Country: US (occurrence: US)
  Receive Date: 20190801
  Receipt Date: 20190813
  Transmission Date: 20191004
  Serious: Yes (Death)
  Sender: FDA-Public Use
  Company Number: US-JNJFOC-20190737736

PATIENT
  Age: 87 Year
  Sex: Male

DRUGS (1)
  1. ERLEADA [Suspect]
     Active Substance: APALUTAMIDE
     Indication: PROSTATE CANCER
     Route: 048
     Dates: start: 20190205, end: 20190806

REACTIONS (3)
  - Death [Fatal]
  - Fall [Fatal]
  - Malaise [Fatal]

NARRATIVE: CASE EVENT DATE: 20190725
